FAERS Safety Report 13430781 (Version 3)
Quarter: 2018Q1

REPORT INFORMATION
  Report Type: Spontaneous
  Country: PL (occurrence: PL)
  Receive Date: 20170412
  Receipt Date: 20180111
  Transmission Date: 20180508
  Serious: Yes (Death, Other)
  Sender: FDA-Public Use
  Company Number: PL-LUPIN PHARMACEUTICALS INC.-2017-01700

PATIENT
  Age: 67 Year
  Sex: Male

DRUGS (17)
  1. METAMIZOLE [Concomitant]
     Active Substance: METAMIZOLE
     Indication: ANALGESIC THERAPY
     Dosage: UNK
     Route: 065
  2. TRAMADOL. [Suspect]
     Active Substance: TRAMADOL
     Dosage: LARGER DOSE THAN INITIAL
     Route: 048
  3. MORPHINE [Suspect]
     Active Substance: MORPHINE
     Indication: PAIN
     Dosage: 2.5 MG, AS NEEDED
     Route: 048
     Dates: start: 20120615
  4. MORPHINE [Suspect]
     Active Substance: MORPHINE
     Dosage: EVERY 4 HR
     Route: 058
     Dates: start: 20120817
  5. DEXAMETHASONE. [Concomitant]
     Active Substance: DEXAMETHASONE
     Indication: PRODUCT USED FOR UNKNOWN INDICATION
     Dosage: 4 MG, UNK
     Route: 058
  6. MORPHINE [Suspect]
     Active Substance: MORPHINE
     Dosage: 5 MG, EVERY 4 HR
     Route: 048
     Dates: start: 20120621
  7. CIPROFLOXACIN. [Concomitant]
     Active Substance: CIPROFLOXACIN
     Indication: MORGANELLA INFECTION
     Dosage: 500 MG, BID
     Route: 048
  8. PAPAVERINE [Concomitant]
     Active Substance: PAPAVERINE
     Indication: ANALGESIC THERAPY
     Dosage: UNK
     Route: 065
  9. AMOXICILLIN W/CLAVULANIC ACID [Concomitant]
     Active Substance: AMOXICILLIN\CLAVULANIC ACID
     Indication: PRODUCT USED FOR UNKNOWN INDICATION
     Dosage: 1 G, BID
     Route: 048
  10. TRAMADOL. [Suspect]
     Active Substance: TRAMADOL
     Indication: PAIN
     Dosage: 50 MG, EVERY 6-8 HR
     Route: 048
     Dates: start: 20120606
  11. OXYCODONE HYDROCHLORIDE TABLETS [Suspect]
     Active Substance: OXYCODONE HYDROCHLORIDE
     Indication: PAIN
     Dosage: 10 MG, BID
     Route: 065
     Dates: start: 20120807
  12. TRIMETHOPRIM. [Concomitant]
     Active Substance: TRIMETHOPRIM
     Indication: MORGANELLA INFECTION
     Dosage: 5 ML, ONCE IN 5 HR
     Route: 065
     Dates: start: 20120607, end: 20120621
  13. TRAMADOL. [Suspect]
     Active Substance: TRAMADOL
     Dosage: UNK
     Route: 048
  14. VALPROATE [Concomitant]
     Active Substance: VALPROIC ACID
     Indication: EPILEPSY
     Dosage: 500 MG, BID
     Route: 065
  15. CODEINE [Concomitant]
     Active Substance: CODEINE
     Indication: ANALGESIC THERAPY
     Dosage: UNK
     Route: 065
  16. TRAMADOL. [Suspect]
     Active Substance: TRAMADOL
     Dosage: 50-75 MG IN DROPS
     Route: 048
  17. INSULIN [Concomitant]
     Active Substance: INSULIN NOS
     Indication: TYPE 2 DIABETES MELLITUS
     Dosage: UNK
     Route: 065

REACTIONS (8)
  - Pyrexia [Unknown]
  - Epilepsy [Unknown]
  - Loss of consciousness [Unknown]
  - Musculoskeletal stiffness [Unknown]
  - Neurological decompensation [Unknown]
  - Chills [Unknown]
  - Somnolence [Unknown]
  - Apathy [Unknown]

NARRATIVE: CASE EVENT DATE: 20120621
